FAERS Safety Report 6386764-9 (Version None)
Quarter: 2009Q4

REPORT INFORMATION
  Report Type: 
  Country: None (occurrence: None)
  Receive Date: 20091002
  Receipt Date: 20090922
  Transmission Date: 20100525
  Serious: Yes (Life-Threatening)
  Sender: FDA-Public Use
  Company Number: A0809823A

PATIENT
  Age: 39 Year
  Sex: Female
  Weight: 66 kg

DRUGS (8)
  1. WELLBUTRIN SR [Suspect]
     Indication: DRUG USE FOR UNKNOWN INDICATION
     Dosage: 100MG THREE TIMES PER DAY
  2. WELLBUTRIN SR [Suspect]
     Dosage: 100MG THREE TIMES PER DAY
  3. BUPROPION HCL [Suspect]
     Indication: DRUG USE FOR UNKNOWN INDICATION
     Dosage: 150MG TWICE PER DAY
     Route: 048
  4. BUPROPION HCL [Suspect]
     Dosage: 150MG PER DAY
  5. WELLBUTRIN [Suspect]
     Indication: DRUG USE FOR UNKNOWN INDICATION
     Dosage: 100MG PER DAY
  6. WELLBUTRIN [Suspect]
     Dosage: 100MG TWICE PER DAY
  7. WELLBUTRIN [Suspect]
     Dosage: 100MG THREE TIMES PER DAY
  8. VITAMIN B-12 [Concomitant]

REACTIONS (8)
  - AGITATION [None]
  - COMPULSIONS [None]
  - CRYING [None]
  - DEPRESSION [None]
  - DISSOCIATION [None]
  - INTENTIONAL SELF-INJURY [None]
  - SUICIDAL IDEATION [None]
  - SUICIDE ATTEMPT [None]
